FAERS Safety Report 6535026-5 (Version None)
Quarter: 2010Q1

REPORT INFORMATION
  Report Type: 
  Country: None (occurrence: None)
  Receive Date: 20100111
  Receipt Date: 20100111
  Transmission Date: 20100710
  Serious: Yes (Life-Threatening, Other)
  Sender: FDA-Public Use
  Company Number: None

PATIENT
  Age: 67 Year
  Sex: Female

DRUGS (1)
  1. METOPROLOL TARTRATE [Suspect]
     Dosage: 25 MG PO
     Route: 048
     Dates: start: 20090421, end: 20090421

REACTIONS (4)
  - BRADYCARDIA [None]
  - HYPOTENSION [None]
  - NAUSEA [None]
  - SINUS ARREST [None]
